FAERS Safety Report 6910376-9 (Version None)
Quarter: 2010Q3

REPORT INFORMATION
  Report Type: 
  Country: None (occurrence: None)
  Receive Date: 20100806
  Receipt Date: 20100803
  Transmission Date: 20110219
  Serious: Yes (Life-Threatening, Other)
  Sender: FDA-Public Use
  Company Number: DE-BRISTOL-MYERS SQUIBB COMPANY-15222821

PATIENT
  Age: 30 Year
  Sex: Male

DRUGS (3)
  1. ABILIFY [Suspect]
     Indication: SCHIZOPHRENIA
     Dosage: 1DF:85 TABLETS
  2. BENZODIAZEPINES [Suspect]
  3. PIPAMPERONE [Suspect]

REACTIONS (3)
  - BRAIN DEATH [None]
  - OVERDOSE [None]
  - SUICIDE ATTEMPT [None]
